FAERS Safety Report 9346064 (Version 1)
Quarter: 2013Q2

REPORT INFORMATION
  Report Type: Spontaneous
  Country: US (occurrence: US)
  Receive Date: 20130613
  Receipt Date: 20130613
  Transmission Date: 20140414
  Serious: Yes (Other)
  Sender: FDA-Public Use
  Company Number: US-ENDO PHARMACEUTICALS INC.-ISOS20130008

PATIENT
  Sex: Female

DRUGS (4)
  1. ISOSORBIDE MONONITRATE ER [Suspect]
     Indication: BLOOD PRESSURE
     Route: 048
  2. ISOSORBIDE MONONITRATE ER [Suspect]
     Indication: HEART RATE INCREASED
  3. ASPIRIN [Concomitant]
     Indication: PRODUCT USED FOR UNKNOWN INDICATION
     Route: 048
  4. COREG [Concomitant]
     Indication: PRODUCT USED FOR UNKNOWN INDICATION
     Dosage: UNK
     Route: 048

REACTIONS (4)
  - Enterocolitis infectious [Unknown]
  - Volvulus [Unknown]
  - Medication residue present [Unknown]
  - Dizziness [Unknown]
